FAERS Safety Report 6529446-2 (Version None)
Quarter: 2010Q1

REPORT INFORMATION
  Report Type: 
  Country: None (occurrence: None)
  Receive Date: 20100107
  Receipt Date: 20091230
  Transmission Date: 20100710
  Serious: Yes (Other)
  Sender: FDA-Public Use
  Company Number: US-ASTRAZENECA-2009SE14890

PATIENT
  Age: 52 Year
  Sex: Female
  Weight: 84.4 kg

DRUGS (6)
  1. ARIMIDEX [Suspect]
     Indication: BREAST CANCER
     Route: 048
     Dates: start: 20070801
  2. NAPROSYN [Concomitant]
     Indication: MIGRAINE
  3. TYLENOL PM [Concomitant]
  4. AMBIEN [Concomitant]
  5. CALCIUM W/D [Concomitant]
  6. EFFEXOR [Concomitant]
     Indication: HOT FLUSH
     Route: 048
     Dates: start: 20051020

REACTIONS (9)
  - ARTHRALGIA [None]
  - BONE DENSITY DECREASED [None]
  - FALL [None]
  - IMPAIRED HEALING [None]
  - JOINT STIFFNESS [None]
  - MASTECTOMY [None]
  - MYALGIA [None]
  - PARAESTHESIA [None]
  - TRIGGER FINGER [None]
